FAERS Safety Report 10342818 (Version 1)
Quarter: 2014Q3

REPORT INFORMATION
  Report Type: Spontaneous
  Country: US (occurrence: None)
  Receive Date: 20140723
  Receipt Date: 20140723
  Transmission Date: 20150326
  Serious: Yes (Hospitalization, Other)
  Sender: FDA-Public Use
  Company Number: ADR-2014-01276

PATIENT
  Age: 18 Year
  Sex: Male

DRUGS (1)
  1. BACLOFEN INTRATHECAL [Suspect]
     Active Substance: BACLOFEN
     Indication: MUSCLE SPASTICITY

REACTIONS (13)
  - Discomfort [None]
  - Stress [None]
  - Device failure [None]
  - Muscle spasticity [None]
  - Tension [None]
  - Abdominal distension [None]
  - Agitation [None]
  - Malabsorption [None]
  - No therapeutic response [None]
  - Aphasia [None]
  - Tachycardia [None]
  - Condition aggravated [None]
  - Erythema [None]

NARRATIVE: CASE EVENT DATE: 20140713
